FAERS Safety Report 18648751 (Version 2)
Quarter: 2020Q4

REPORT INFORMATION
  Report Type: Spontaneous
  Country: CZ (occurrence: CZ)
  Receive Date: 20201222
  Receipt Date: 20201229
  Transmission Date: 20210114
  Serious: Yes (Other)
  Sender: FDA-Public Use
  Company Number: CZ-MYLANLABS-2020M1103162

PATIENT
  Age: 41 Year
  Sex: Female

DRUGS (6)
  1. HALOPERIDOL. [Concomitant]
     Active Substance: HALOPERIDOL
     Indication: SCHIZOPHRENIA
     Dosage: 6 MILLIGRAM, QD
  2. DESLORATADINE. [Concomitant]
     Active Substance: DESLORATADINE
     Indication: SEASONAL ALLERGY
     Dosage: 5 MILLIGRAM, QD
     Route: 065
  3. OLANZAPINE. [Suspect]
     Active Substance: OLANZAPINE
     Indication: SCHIZOPHRENIA
     Dosage: UNK
  4. HALOPERIDOL. [Concomitant]
     Active Substance: HALOPERIDOL
     Dosage: 10 MILLIGRAM, QD
     Route: 030
  5. LEVOTHYROXINE. [Concomitant]
     Active Substance: LEVOTHYROXINE
     Indication: PRODUCT USED FOR UNKNOWN INDICATION
     Dosage: UNK
     Route: 065
  6. QUETIAPINE. [Suspect]
     Active Substance: QUETIAPINE
     Indication: SCHIZOPHRENIA
     Dosage: 300 MILLIGRAM, QD
     Route: 065

REACTIONS (15)
  - Obesity [Recovering/Resolving]
  - Hallucination, visual [Recovered/Resolved]
  - Stupor [Recovered/Resolved]
  - Low density lipoprotein increased [Unknown]
  - Dysphoria [Recovered/Resolved]
  - Irritability [Recovered/Resolved]
  - Intentional product misuse [Unknown]
  - Sleep disorder [Unknown]
  - Delusion [Recovered/Resolved]
  - Drug ineffective [Unknown]
  - Hyperprolactinaemia [Unknown]
  - Affect lability [Recovered/Resolved]
  - Mutism [Recovered/Resolved]
  - Illogical thinking [Recovered/Resolved]
  - Depressive delusion [Recovered/Resolved]
